FAERS Safety Report 10064018 (Version 30)
Quarter: 2016Q4

REPORT INFORMATION
  Report Type: Report from Study
  Country: CA (occurrence: CA)
  Receive Date: 20140408
  Receipt Date: 20161228
  Transmission Date: 20170206
  Serious: Yes (Hospitalization, Other)
  Sender: FDA-Public Use
  Company Number: CA-ROCHE-1173339

PATIENT
  Age: 71 Year
  Sex: Female
  Weight: 76 kg

DRUGS (17)
  1. ACTEMRA [Suspect]
     Active Substance: TOCILIZUMAB
     Route: 042
     Dates: start: 20160312
  2. EURO-FOLIC [Concomitant]
  3. PLAVIX [Concomitant]
     Active Substance: CLOPIDOGREL BISULFATE
  4. METAMUCIL [Concomitant]
     Active Substance: PLANTAGO SEED
  5. CELEBREX [Suspect]
     Active Substance: CELECOXIB
     Indication: ARTHRALGIA
     Route: 065
     Dates: start: 20140609
  6. CRESTOR [Concomitant]
     Active Substance: ROSUVASTATIN CALCIUM
  7. LOPRESSOR [Concomitant]
     Active Substance: METOPROLOL TARTRATE
  8. ACTEMRA [Suspect]
     Active Substance: TOCILIZUMAB
     Indication: RHEUMATOID ARTHRITIS
     Route: 042
     Dates: start: 2006
  9. ASAPHEN [Concomitant]
     Active Substance: ASPIRIN
  10. NITROGLYCERIN. [Concomitant]
     Active Substance: NITROGLYCERIN
     Route: 065
  11. CLONAZEPAM. [Concomitant]
     Active Substance: CLONAZEPAM
  12. ACTEMRA [Suspect]
     Active Substance: TOCILIZUMAB
     Dosage: 1ST RPAP DOSE
     Route: 042
     Dates: start: 20110628
  13. ACTEMRA [Suspect]
     Active Substance: TOCILIZUMAB
     Route: 042
     Dates: start: 20120510
  14. METHOTREXATE. [Suspect]
     Active Substance: METHOTREXATE
     Indication: PRODUCT USED FOR UNKNOWN INDICATION
     Route: 065
  15. DICLOFENAC [Concomitant]
     Active Substance: DICLOFENAC
  16. METOPROLOL. [Concomitant]
     Active Substance: METOPROLOL
  17. HYDROCHLOROTHIAZIDE. [Concomitant]
     Active Substance: HYDROCHLOROTHIAZIDE

REACTIONS (43)
  - Chest discomfort [Unknown]
  - Pain in extremity [Recovering/Resolving]
  - Haemorrhage [Recovering/Resolving]
  - Abdominal discomfort [Unknown]
  - Influenza [Not Recovered/Not Resolved]
  - Back pain [Not Recovered/Not Resolved]
  - Fatigue [Unknown]
  - Body temperature decreased [Unknown]
  - Hypersomnia [Not Recovered/Not Resolved]
  - Infection [Unknown]
  - Osteoarthritis [Unknown]
  - Dehydration [Recovered/Resolved]
  - Depression [Unknown]
  - Mobility decreased [Not Recovered/Not Resolved]
  - Blood pressure diastolic increased [Unknown]
  - Heart rate increased [Unknown]
  - Nasopharyngitis [Not Recovered/Not Resolved]
  - Arthralgia [Unknown]
  - Gastroenteritis [Recovered/Resolved]
  - Hypertension [Unknown]
  - Neck pain [Unknown]
  - Nasopharyngitis [Recovered/Resolved]
  - Hyperhidrosis [Unknown]
  - Sinusitis [Not Recovered/Not Resolved]
  - Weight increased [Unknown]
  - Haematoma [Recovering/Resolving]
  - Blister [Recovering/Resolving]
  - Feeling hot [Recovered/Resolved]
  - Heart rate decreased [Unknown]
  - Body temperature decreased [Unknown]
  - Loss of consciousness [Recovering/Resolving]
  - Arthritis [Recovered/Resolved]
  - Musculoskeletal pain [Not Recovered/Not Resolved]
  - Breast pain [Not Recovered/Not Resolved]
  - Swelling [Recovered/Resolved]
  - Malaise [Unknown]
  - Body temperature decreased [Unknown]
  - Abdominal pain upper [Unknown]
  - Musculoskeletal stiffness [Not Recovered/Not Resolved]
  - Nervousness [Unknown]
  - Infusion related reaction [Unknown]
  - Blood pressure increased [Unknown]
  - Weight decreased [Recovered/Resolved]

NARRATIVE: CASE EVENT DATE: 201212
